FAERS Safety Report 13517812 (Version 2)
Quarter: 2017Q2

REPORT INFORMATION
  Report Type: Report from Study
  Country: CN (occurrence: CN)
  Receive Date: 20170505
  Receipt Date: 20170608
  Transmission Date: 20170830
  Serious: Yes (Hospitalization)
  Sender: FDA-Public Use
  Company Number: CN-ASTRAZENECA-2017SE45095

PATIENT
  Age: 17494 Day
  Sex: Female
  Weight: 59 kg

DRUGS (2)
  1. AZD2281 [Suspect]
     Active Substance: OLAPARIB
     Indication: BREAST CANCER
     Route: 048
     Dates: start: 20160426, end: 20170425
  2. LAMIVUDINE. [Suspect]
     Active Substance: LAMIVUDINE
     Route: 048
     Dates: start: 201508, end: 20160810

REACTIONS (1)
  - Hepatic function abnormal [Recovered/Resolved]

NARRATIVE: CASE EVENT DATE: 20170427
